FAERS Safety Report 17095010 (Version 1)
Quarter: 2019Q4

REPORT INFORMATION
  Report Type: Spontaneous
  Country: NL (occurrence: NL)
  Receive Date: 20191130
  Receipt Date: 20191130
  Transmission Date: 20200122
  Serious: Yes (Hospitalization)
  Sender: FDA-Public Use
  Company Number: NL-ACCORD-162893

PATIENT
  Age: 43 Year
  Sex: Female
  Weight: 75 kg

DRUGS (10)
  1. CAPECITABINE. [Suspect]
     Active Substance: CAPECITABINE
     Indication: COLON CANCER
     Dosage: 2 TIMES 1000 MG
     Dates: start: 201907, end: 20191105
  2. METOCLOPRAMIDE. [Concomitant]
     Active Substance: METOCLOPRAMIDE
     Dosage: STRENGTH: 10 MG , IF NECESSARY
  3. BEVACIZUMAB. [Concomitant]
     Active Substance: BEVACIZUMAB
  4. DIAZEPAM. [Concomitant]
     Active Substance: DIAZEPAM
     Dosage: TABLET, IF NECESSARY, STRENGTH: 5 MG
  5. ZOLPIDEM [Concomitant]
     Active Substance: ZOLPIDEM TARTRATE
     Dosage: 1 DD 10 MG AN
  6. PARACETAMOL [Concomitant]
     Active Substance: ACETAMINOPHEN
     Dosage: 4X 1000 MG DAILY
  7. OXALIPLATIN. [Concomitant]
     Active Substance: OXALIPLATIN
  8. OMEPRAZOLE. [Concomitant]
     Active Substance: OMEPRAZOLE
     Dosage: STRENGTH: 40 MG
  9. DICLOFENAC [Concomitant]
     Active Substance: DICLOFENAC
     Dosage: 3X DAILY 50 MG EVERY 8 HOURS,
  10. OXYNORM [Concomitant]
     Active Substance: OXYCODONE HYDROCHLORIDE
     Dosage: IF NECESSARY, MAX 1 PER DAY, STRENGTH 5 MG

REACTIONS (1)
  - Arteriospasm coronary [Recovered/Resolved]

NARRATIVE: CASE EVENT DATE: 20191104
